FAERS Safety Report 20365963 (Version 1)
Quarter: 2022Q1

REPORT INFORMATION
  Report Type: Spontaneous
  Country: US (occurrence: US)
  Receive Date: 20220123
  Receipt Date: 20220123
  Transmission Date: 20220424
  Serious: No
  Sender: FDA-Public Use
  Company Number: US-BoehringerIngelheim-2021-BI-134473

PATIENT
  Age: 84 Year
  Sex: Female

DRUGS (1)
  1. OFEV [Suspect]
     Active Substance: NINTEDANIB
     Indication: Idiopathic pulmonary fibrosis
     Route: 048
     Dates: start: 20210917

REACTIONS (4)
  - Diarrhoea [Unknown]
  - Vomiting [Unknown]
  - Drug intolerance [Unknown]
  - Illness [Unknown]

NARRATIVE: CASE EVENT DATE: 20210901
